FAERS Safety Report 8074444-3 (Version None)
Quarter: 2012Q1

REPORT INFORMATION
  Report Type: 
  Country: None (occurrence: None)
  Receive Date: 20120120
  Receipt Date: 20120117
  Transmission Date: 20120608
  Serious: Yes (Other)
  Sender: FDA-Public Use
  Company Number: WAES 1111USC00032

PATIENT
  Age: 59 Year
  Sex: Female

DRUGS (5)
  1. SIMVASTATIN [Suspect]
     Indication: DYSLIPIDAEMIA
  2. NORFLOXACIN [Concomitant]
  3. TAB LAROPIPRANT + NIACIN [Suspect]
     Indication: DYSLIPIDAEMIA
     Dosage: PO
     Route: 048
     Dates: start: 20111026, end: 20111104
  4. XYLOMETAZOLINE HCL [Concomitant]
  5. LORATADINE + PHENYLEPHRINE HYDROCHLORI [Concomitant]

REACTIONS (11)
  - DEPRESSION [None]
  - SUICIDAL IDEATION [None]
  - VERTIGO [None]
  - LACRIMATION INCREASED [None]
  - DECREASED APPETITE [None]
  - CRYING [None]
  - ERYTHEMA [None]
  - RASH [None]
  - EYE PAIN [None]
  - DIZZINESS [None]
  - SLEEP DISORDER [None]
